FAERS Safety Report 13278694 (Version 1)
Quarter: 2017Q1

REPORT INFORMATION
  Report Type: Report from Study
  Country: None (occurrence: BR)
  Receive Date: 20170228
  Receipt Date: 20170228
  Transmission Date: 20170428
  Serious: Yes (Other)
  Sender: FDA-Public Use
  Company Number: BR-ABBVIE-17P-020-1888381-00

PATIENT
  Sex: Female

DRUGS (2)
  1. HUMIRA [Suspect]
     Active Substance: ADALIMUMAB
     Indication: CROHN^S DISEASE
     Route: 050
     Dates: start: 20130315
  2. HUMIRA [Suspect]
     Active Substance: ADALIMUMAB
     Route: 050

REACTIONS (8)
  - Anxiety [Unknown]
  - Insomnia [Unknown]
  - Fear [Unknown]
  - Labyrinthitis [Unknown]
  - Blood uric acid abnormal [Unknown]
  - Stress [Unknown]
  - Joint arthroplasty [Unknown]
  - Nervousness [Unknown]
